FAERS Safety Report 10210097 (Version 1)
Quarter: 2014Q2

REPORT INFORMATION
  Report Type: Spontaneous
  Country: GB (occurrence: None)
  Receive Date: 20140528
  Receipt Date: 20140528
  Transmission Date: 20141212
  Serious: Yes (Hospitalization)
  Sender: FDA-Public Use
  Company Number: AUR-APL-2014-06034

PATIENT
  Age: 33 Year
  Sex: Female

DRUGS (2)
  1. CITALOPRAM (CITALOPRAM) [Suspect]
     Indication: DEPRESSION
     Route: 048
  2. SUMATRIPTAN (SUMATRIPTAN) [Suspect]
     Indication: MIGRAINE
     Route: 048
     Dates: start: 20140429

REACTIONS (3)
  - Drug interaction [None]
  - Dizziness [None]
  - Palpitations [None]
